FAERS Safety Report 6984687-5 (Version None)
Quarter: 2010Q3

REPORT INFORMATION
  Report Type: 
  Country: None (occurrence: None)
  Receive Date: 20100915
  Receipt Date: 20100909
  Transmission Date: 20110219
  Serious: Yes (Hospitalization)
  Sender: FDA-Public Use
  Company Number: BE-ABBOTT-10P-013-0663208-00

PATIENT
  Sex: Male

DRUGS (3)
  1. HUMIRA [Suspect]
     Indication: PSORIATIC ARTHROPATHY
     Dates: start: 20100801
  2. LEDERTREXATE [Concomitant]
     Indication: ARTHRITIS
     Dosage: 10.0MG/WEEK
  3. LEDERTREXATE [Concomitant]
     Dosage: 12.5MG/WEEK

REACTIONS (1)
  - INTERVERTEBRAL DISC PROTRUSION [None]
